FAERS Safety Report 18683949 (Version 1)
Quarter: 2020Q4

REPORT INFORMATION
  Report Type: Report from Study
  Country: BR (occurrence: BR)
  Receive Date: 20201230
  Receipt Date: 20201230
  Transmission Date: 20210114
  Serious: Yes (Hospitalization, Other)
  Sender: FDA-Public Use
  Company Number: BR-TAKEDA-2020TUS020981

PATIENT
  Age: 44 Year
  Sex: Female
  Weight: 63 kg

DRUGS (5)
  1. DULOXETINE. [Concomitant]
     Active Substance: DULOXETINE
     Indication: FIBROMYALGIA
     Dosage: 60 MILLIGRAM
     Route: 065
  2. TRAMAL [Concomitant]
     Active Substance: TRAMADOL
     Indication: FIBROMYALGIA
     Dosage: 60 MILLIGRAM
     Route: 065
  3. LOSARTAN. [Concomitant]
     Active Substance: LOSARTAN
     Indication: HYPERTENSION
     Dosage: UNK
     Route: 065
  4. VEDOLIZUMAB [Suspect]
     Active Substance: VEDOLIZUMAB
     Indication: COLITIS ULCERATIVE
     Dosage: 300 MILLIGRAM
     Route: 042
     Dates: start: 20191019
  5. AZATHIOPRINE. [Concomitant]
     Active Substance: AZATHIOPRINE
     Indication: COLITIS ULCERATIVE
     Dosage: 50 MILLIGRAM, Q8HR
     Route: 065

REACTIONS (11)
  - Arthralgia [Unknown]
  - Asthenia [Recovered/Resolved]
  - Off label use [Unknown]
  - Pain [Unknown]
  - Influenza [Recovered/Resolved]
  - Decreased appetite [Recovered/Resolved]
  - Fall [Unknown]
  - Pyrexia [Recovered/Resolved]
  - Poor venous access [Unknown]
  - Plantar fasciitis [Not Recovered/Not Resolved]
  - Diarrhoea [Recovered/Resolved]

NARRATIVE: CASE EVENT DATE: 20191112
